FAERS Safety Report 10004809 (Version 1)
Quarter: 2014Q1

REPORT INFORMATION
  Report Type: Spontaneous
  Country: IT (occurrence: IT)
  Receive Date: 20140312
  Receipt Date: 20140312
  Transmission Date: 20141002
  Serious: Yes (Other)
  Sender: FDA-Public Use
  Company Number: IT-GLAXOSMITHKLINE-B0975848A

PATIENT
  Age: 34 Year
  Sex: Male

DRUGS (1)
  1. FLUTICASONE PROPIONATE + SALMETEROL XINAFOATE [Suspect]
     Indication: PANIC DISORDER
     Route: 055

REACTIONS (6)
  - Bone loss [Unknown]
  - Rib fracture [Unknown]
  - Osteoporosis [Unknown]
  - Osteopenia [Unknown]
  - Azotaemia [Unknown]
  - Anxiety [Unknown]
